FAERS Safety Report 6665820-1 (Version None)
Quarter: 2010Q2

REPORT INFORMATION
  Report Type: 
  Country: None (occurrence: None)
  Receive Date: 20100402
  Receipt Date: 20100329
  Transmission Date: 20101027
  Serious: Yes (Death, Hospitalization)
  Sender: FDA-Public Use
  Company Number: SE-ROCHE-665527

PATIENT

DRUGS (4)
  1. BEVACIZUMAB [Suspect]
     Dosage: LAST COURSE WAS GIVEN ON 06 OCTOBER 2009
     Route: 065
     Dates: start: 20090714
  2. FLUOROURACIL [Suspect]
     Dosage: DATE OF LAST DOSE 06 OCTOBER 2009, FORM PER PROTOCOL: INFUSION
     Route: 065
     Dates: start: 20090714
  3. FOLINIC ACID [Suspect]
     Dosage: DATE OF LAST DOSE 06 OCTOBER 2009
     Route: 065
     Dates: start: 20090714
  4. OXALIPLATIN [Suspect]
     Dosage: DATE OF LAST DOSE 06 OCTOBER 2009
     Route: 065
     Dates: start: 20090714

REACTIONS (2)
  - EMBOLISM [None]
  - VENOUS THROMBOSIS LIMB [None]
